FAERS Safety Report 12935074 (Version 1)
Quarter: 2016Q4

REPORT INFORMATION
  Report Type: Spontaneous
  Country: US (occurrence: US)
  Receive Date: 20161113
  Receipt Date: 20161113
  Transmission Date: 20170207
  Serious: No
  Sender: FDA-Public Use
  Company Number: US-TAIHO ONCOLOGY INC-EU-2016-02905

PATIENT
  Sex: Female

DRUGS (6)
  1. CHLORELLA VULGARIS [Concomitant]
     Active Substance: CHLORELLA VULGARIS
     Dates: start: 201609
  2. VITIS VINIFERA SEED [Concomitant]
     Dates: start: 201609
  3. CURCUMA LONGA RHIZOME [Concomitant]
     Dates: start: 201609
  4. GLUTATHIONE [Concomitant]
     Active Substance: GLUTATHIONE
     Dates: start: 201609
  5. ACETYLSALICYLIC ACID [Concomitant]
     Active Substance: ASPIRIN
     Dates: start: 201609
  6. LONSURF [Suspect]
     Active Substance: TIPIRACIL HYDROCHLORIDE\TRIFLURIDINE
     Indication: COLON CANCER
     Route: 048
     Dates: start: 201601, end: 2016

REACTIONS (1)
  - Blood count abnormal [Unknown]

NARRATIVE: CASE EVENT DATE: 2016
